FAERS Safety Report 12504365 (Version 3)
Quarter: 2017Q2

REPORT INFORMATION
  Report Type: Spontaneous
  Country: US (occurrence: US)
  Receive Date: 20160628
  Receipt Date: 20170620
  Transmission Date: 20170830
  Serious: Yes (Other)
  Sender: FDA-Public Use
  Company Number: US-TEVA-671964ACC

PATIENT
  Sex: Female

DRUGS (1)
  1. PARAGARD T 380A [Suspect]
     Active Substance: COPPER
     Indication: CONTRACEPTION
     Dates: start: 20100215

REACTIONS (5)
  - Exposure during pregnancy [Unknown]
  - Pregnancy on contraceptive [Unknown]
  - Embedded device [Not Recovered/Not Resolved]
  - Normal newborn [Unknown]
  - Exposure during breast feeding [Unknown]
